FAERS Safety Report 4715404-7 (Version None)
Quarter: 2005Q3

REPORT INFORMATION
  Report Type: 
  Country: None (occurrence: None)
  Receive Date: 20050714
  Receipt Date: 20050714
  Transmission Date: 20060218
  Serious: No
  Sender: FDA-Public Use
  Company Number: None

PATIENT

DRUGS (1)
  1. MAGNESIUM SULFATE [Suspect]
     Dosage: INJECTABLE

REACTIONS (5)
  - BLOOD MAGNESIUM INCREASED [None]
  - DRUG DISPENSING ERROR [None]
  - DYSPNOEA [None]
  - INCORRECT DOSE ADMINISTERED [None]
  - WHEEZING [None]
